FAERS Safety Report 14325064 (Version 5)
Quarter: 2018Q1

REPORT INFORMATION
  Report Type: Report from Study
  Country: US (occurrence: US)
  Receive Date: 20171226
  Receipt Date: 20180320
  Transmission Date: 20180509
  Serious: Yes (Hospitalization, Other)
  Sender: FDA-Public Use
  Company Number: US-CLOVIS ONCOLOGY-CLO-2017-001366

PATIENT
  Sex: Female

DRUGS (1)
  1. RUBRACA [Suspect]
     Active Substance: RUCAPARIB CAMSYLATE
     Indication: OVARIAN CANCER
     Dosage: 600 MG, BID
     Route: 048
     Dates: start: 20171116, end: 20180210

REACTIONS (19)
  - Dysgeusia [Unknown]
  - Abdominal distension [Unknown]
  - Bile duct obstruction [Unknown]
  - Vomiting [Unknown]
  - Hepatic enzyme increased [Recovered/Resolved]
  - Chromaturia [Unknown]
  - Fatigue [Unknown]
  - Decreased appetite [Unknown]
  - Drug ineffective [Unknown]
  - Urinary tract infection [Unknown]
  - Pancreatitis [Recovered/Resolved]
  - Jaundice [Recovered/Resolved]
  - Nausea [Recovered/Resolved]
  - Drug dose omission [Unknown]
  - Influenza [Unknown]
  - Malignant neoplasm progression [Unknown]
  - Tumour marker increased [Unknown]
  - Ocular icterus [Unknown]
  - Bacteraemia [Unknown]

NARRATIVE: CASE EVENT DATE: 2017
